FAERS Safety Report 5506727-2 (Version None)
Quarter: 2007Q4

REPORT INFORMATION
  Report Type: 
  Country: None (occurrence: None)
  Receive Date: 20071105
  Receipt Date: 20071026
  Transmission Date: 20080405
  Serious: Yes (Other)
  Sender: FDA-Public Use
  Company Number: US-ELI_LILLY_AND_COMPANY-US200710006703

PATIENT
  Sex: Male

DRUGS (2)
  1. BYETTA [Suspect]
     Dosage: UNK, UNKNOWN
     Route: 058
  2. TOPAMAX [Concomitant]
     Dosage: UNK, UNKNOWN

REACTIONS (2)
  - BLOOD CALCIUM INCREASED [None]
  - THYROID NEOPLASM [None]
